FAERS Safety Report 10163837 (Version 1)
Quarter: 2014Q2

REPORT INFORMATION
  Report Type: Spontaneous
  Country: US (occurrence: US)
  Receive Date: 20140509
  Receipt Date: 20140509
  Transmission Date: 20141212
  Serious: No
  Sender: FDA-Public Use
  Company Number: US-009507513-1403USA014122

PATIENT
  Age: 88 Year
  Sex: Female

DRUGS (1)
  1. OXYTROL FOR WOMEN [Suspect]
     Indication: PRODUCT USED FOR UNKNOWN INDICATION
     Dosage: UNK UNK, UNKNOWN
     Route: 062

REACTIONS (6)
  - Feeling abnormal [Unknown]
  - Malaise [Unknown]
  - Burning sensation [Unknown]
  - Application site rash [Unknown]
  - Pruritus [Unknown]
  - Drug ineffective [Unknown]
